FAERS Safety Report 23766385 (Version 1)
Quarter: 2024Q2

REPORT INFORMATION
  Report Type: Spontaneous
  Country: CA (occurrence: CA)
  Receive Date: 20240422
  Receipt Date: 20240422
  Transmission Date: 20240716
  Serious: Yes (Hospitalization, Other)
  Sender: FDA-Public Use
  Company Number: CA-BAXTER-2024BAX016923

PATIENT
  Age: 6 Year
  Sex: Male
  Weight: 27 kg

DRUGS (16)
  1. CYCLOPHOSPHAMIDE [Suspect]
     Active Substance: CYCLOPHOSPHAMIDE
     Indication: Neuroblastoma
     Dosage: DOSAGE FORM: NOT SPECIFIED
     Route: 042
  2. DOXORUBICIN [Suspect]
     Active Substance: DOXORUBICIN
     Indication: Neuroblastoma
     Dosage: DOSAGE FORM: INJECTION
     Route: 042
  3. MESNA [Suspect]
     Active Substance: MESNA
     Indication: Neuroblastoma
     Dosage: DOSAGE FORM: SOLUTION INTRAVENOUS
     Route: 042
  4. DEXRAZOXANE [Suspect]
     Active Substance: DEXRAZOXANE
     Indication: Neuroblastoma
     Dosage: DOSAGE FORM: POWDER FOR SOLUTION INTRAVENOUS, SINGLE USE VIAL
     Route: 042
  5. VINCRISTINE SULFATE [Suspect]
     Active Substance: VINCRISTINE SULFATE
     Indication: Neuroblastoma
     Dosage: DOSAGE FORM: NOT SPECIFIED
     Route: 065
  6. ACETAMINOPHEN [Concomitant]
     Active Substance: ACETAMINOPHEN
     Dosage: DOSAGE FORM: NOT SPECIFIED
     Route: 065
  7. CALCIUM [Concomitant]
     Active Substance: CALCIUM
     Dosage: DOSAGE FORM: NOT SPECIFIED
     Route: 065
  8. CEFIXIME [Concomitant]
     Active Substance: CEFIXIME
     Dosage: UNK
     Route: 065
  9. DEXAMETHASONE [Concomitant]
     Active Substance: DEXAMETHASONE
     Dosage: DOSAGE FORM: NOT SPECIFIED
     Route: 065
  10. DIMENHYDRINATE [Concomitant]
     Active Substance: DIMENHYDRINATE
     Dosage: DOSAGE FORM: NOT SPECIFIED
     Route: 065
  11. EMEND [Concomitant]
     Active Substance: APREPITANT
     Dosage: UNK
     Route: 065
  12. LOPERAMIDE [Concomitant]
     Active Substance: LOPERAMIDE
     Dosage: UNK
     Route: 065
  13. LORAZEPAM [Concomitant]
     Active Substance: LORAZEPAM
     Dosage: DOSAGE FORM: NOT SPECIFIED
     Route: 065
  14. OLANZAPINE [Concomitant]
     Active Substance: OLANZAPINE
     Dosage: DOSAGE FORM: NOT SPECIFIED
     Route: 065
  15. ONDANSETRON [Concomitant]
     Active Substance: ONDANSETRON
     Dosage: DOSAGE FORM: NOT SPECIFIED
     Route: 065
  16. VITAMIN D3 [Concomitant]
     Active Substance: CHOLECALCIFEROL
     Dosage: UNK
     Route: 065

REACTIONS (1)
  - Febrile neutropenia [Recovered/Resolved]
